FAERS Safety Report 8724995 (Version 2)
Quarter: 2015Q2

REPORT INFORMATION
  Report Type: Report from Study
  Country: US (occurrence: US)
  Receive Date: 20120813
  Receipt Date: 20150624
  Transmission Date: 20150821
  Serious: Yes (Hospitalization)
  Sender: FDA-Public Use
  Company Number: US-ROCHE-1096681

PATIENT
  Age: 37 Year
  Sex: Male

DRUGS (6)
  1. ACTIVASE [Suspect]
     Active Substance: ALTEPLASE
     Indication: ACUTE MYOCARDIAL INFARCTION
     Route: 042
  2. ACTIVASE [Suspect]
     Active Substance: ALTEPLASE
     Dosage: 20MG/HR
     Route: 042
  3. ACTIVASE [Suspect]
     Active Substance: ALTEPLASE
     Route: 042
  4. LIDOCAINE. [Concomitant]
     Active Substance: LIDOCAINE
     Route: 065
  5. ACTIVASE [Suspect]
     Active Substance: ALTEPLASE
     Route: 042
  6. TRIDIL [Concomitant]
     Active Substance: NITROGLYCERIN
     Route: 065

REACTIONS (4)
  - Back pain [Recovered/Resolved]
  - Arthralgia [Unknown]
  - Body temperature increased [Unknown]
  - Productive cough [Unknown]
